FAERS Safety Report 10664508 (Version 2)
Quarter: 2014Q4

REPORT INFORMATION
  Report Type: Spontaneous
  Country: JP (occurrence: None)
  Receive Date: 20141217
  Receipt Date: 20141218
  Transmission Date: 20150529
  Serious: Yes (Hospitalization, Other)
  Sender: FDA-Public Use
  Company Number: A201214922

PATIENT
  Age: 78 Year
  Sex: Male

DRUGS (2)
  1. ADEFOVIR DIPIVOXIL. [Suspect]
     Active Substance: ADEFOVIR DIPIVOXIL
     Indication: HEPATITIS B
     Route: 048
     Dates: start: 200609
  2. LAMIVUDINE (LAMIVUDINE) TABLET [Suspect]
     Active Substance: LAMIVUDINE
     Route: 048

REACTIONS (20)
  - Osteomalacia [None]
  - Musculoskeletal disorder [None]
  - Rib fracture [None]
  - Oedema peripheral [None]
  - Pulmonary mass [None]
  - Blood alkaline phosphatase increased [None]
  - Back pain [None]
  - Fall [None]
  - Pulmonary tuberculosis [None]
  - Pain in extremity [None]
  - Pleural effusion [None]
  - Bone density decreased [None]
  - Pain [None]
  - Metastasis [None]
  - Femoral neck fracture [None]
  - Blood phosphorus decreased [None]
  - Viral load increased [None]
  - Fanconi syndrome [None]
  - Gait disturbance [None]
  - Drug resistance [None]
